FAERS Safety Report 15402937 (Version 1)
Quarter: 2018Q3

REPORT INFORMATION
  Report Type: Spontaneous
  Country: US (occurrence: US)
  Receive Date: 20180919
  Receipt Date: 20180919
  Transmission Date: 20181010
  Serious: No
  Sender: FDA-Public Use
  Company Number: US-AMNEAL PHARMACEUTICALS-2018AMN00315

PATIENT
  Sex: Male

DRUGS (4)
  1. HYDROCODONE AND ACETAMINOPHEN [Suspect]
     Active Substance: ACETAMINOPHEN\HYDROCODONE
     Dosage: 1 TABLETS, 4X/DAY
  2. LYRICA [Suspect]
     Active Substance: PREGABALIN
  3. PHENERGAN [Suspect]
     Active Substance: PROMETHAZINE HYDROCHLORIDE
  4. ATENOLOL. [Suspect]
     Active Substance: ATENOLOL

REACTIONS (1)
  - Drug ineffective [Unknown]
